FAERS Safety Report 19085208 (Version 1)
Quarter: 2021Q2

REPORT INFORMATION
  Report Type: Spontaneous
  Country: CA (occurrence: CA)
  Receive Date: 20210402
  Receipt Date: 20210402
  Transmission Date: 20210717
  Serious: Yes (Hospitalization)
  Sender: FDA-Public Use
  Company Number: CA-TEVA-2021-CA-1896264

PATIENT
  Age: 78 Year
  Sex: Male
  Weight: 75 kg

DRUGS (12)
  1. DOCETAXEL. [Suspect]
     Active Substance: DOCETAXEL
     Indication: NEOPLASM PROSTATE
     Route: 065
  2. DEXAMETHASONE. [Concomitant]
     Active Substance: DEXAMETHASONE
  3. LORAZEPAM. [Concomitant]
     Active Substance: LORAZEPAM
  4. ZOLADEX [Concomitant]
     Active Substance: GOSERELIN ACETATE
  5. CALCIUM + VITAMIN D [Concomitant]
     Active Substance: CALCIUM\VITAMIN D
  6. XGEVA [Concomitant]
     Active Substance: DENOSUMAB
  7. OLMESARTAN MEDOXOMIL / HYDROCHLOROTHIAZIDE [Concomitant]
     Active Substance: HYDROCHLOROTHIAZIDE\OLMESARTAN MEDOXOMIL
  8. PREDNISONE. [Suspect]
     Active Substance: PREDNISONE
     Indication: NEOPLASM PROSTATE
     Route: 065
  9. KEYTRUDA [Suspect]
     Active Substance: PEMBROLIZUMAB
     Indication: NEOPLASM PROSTATE
     Route: 065
  10. ASA [Concomitant]
     Active Substance: ASPIRIN
  11. DECADRON [Concomitant]
     Active Substance: DEXAMETHASONE
  12. PROCHLORPERAZINE. [Concomitant]
     Active Substance: PROCHLORPERAZINE

REACTIONS (2)
  - Pneumonia [Unknown]
  - Febrile neutropenia [Unknown]
